FAERS Safety Report 5558473-7 (Version None)
Quarter: 2007Q4

REPORT INFORMATION
  Report Type: 
  Country: None (occurrence: None)
  Receive Date: 20071214
  Receipt Date: 20071016
  Transmission Date: 20080405
  Serious: No
  Sender: FDA-Public Use
  Company Number: US-ABBOTT-07P-163-0369454-00

PATIENT
  Sex: Female
  Weight: 90.9 kg

DRUGS (8)
  1. HUMIRA [Suspect]
     Indication: CROHN'S DISEASE
     Route: 058
     Dates: start: 20070515, end: 20070822
  2. HUMIRA [Suspect]
     Route: 058
     Dates: start: 20070822
  3. HUMIRA [Suspect]
     Indication: PSORIASIS
  4. VENLAFAXIINE HCL [Concomitant]
     Indication: DEPRESSION
     Route: 048
     Dates: start: 20040101
  5. BUDESONIDE [Concomitant]
     Indication: DRUG USE FOR UNKNOWN INDICATION
     Route: 048
     Dates: start: 20060101
  6. ALPRAZOLAM [Concomitant]
     Indication: DRUG USE FOR UNKNOWN INDICATION
     Dosage: 1 TABLET AT BEDTIME.
     Route: 048
     Dates: start: 20020101
  7. GABAPENTIN [Concomitant]
     Indication: NEUROPATHY
     Dosage: ONE AT BEDTIME
     Route: 048
     Dates: start: 20020101
  8. AMATRIPTOLINE [Concomitant]
     Indication: DRUG USE FOR UNKNOWN INDICATION
     Dosage: 25MG AT BEDTIME
     Route: 048
     Dates: start: 20070401

REACTIONS (12)
  - ABDOMINAL PAIN [None]
  - ARTHRALGIA [None]
  - COUGH [None]
  - DIARRHOEA [None]
  - DRUG INEFFECTIVE [None]
  - FATIGUE [None]
  - FLATULENCE [None]
  - NASOPHARYNGITIS [None]
  - NEUROPATHY [None]
  - PAIN [None]
  - POLYNEUROPATHY IDIOPATHIC PROGRESSIVE [None]
  - RESPIRATORY TRACT CONGESTION [None]
